FAERS Safety Report 9396627 (Version 1)
Quarter: 2013Q3

REPORT INFORMATION
  Report Type: Spontaneous
  Country: US (occurrence: US)
  Receive Date: 20130711
  Receipt Date: 20130711
  Transmission Date: 20140515
  Serious: Yes (Other)
  Sender: FDA-Public Use
  Company Number: US-RB-055847-13

PATIENT
  Age: 22 Year
  Sex: Female
  Weight: 64 kg

DRUGS (3)
  1. SUBOXONE [Suspect]
     Indication: DRUG DEPENDENCE
     Route: 060
     Dates: start: 20051208, end: 20060115
  2. SUBUTEX [Suspect]
     Indication: DRUG DEPENDENCE
     Route: 059
     Dates: start: 20060116, end: 200607
  3. NICOTINE [Suspect]
     Indication: TOBACCO USER
     Dosage: 1 PACK A DAY
     Route: 055

REACTIONS (2)
  - Exposure during pregnancy [Recovered/Resolved]
  - Premature delivery [Recovered/Resolved]
